FAERS Safety Report 7508619-6 (Version None)
Quarter: 2011Q2

REPORT INFORMATION
  Report Type: 
  Country: None (occurrence: None)
  Receive Date: 20110527
  Receipt Date: 20110301
  Transmission Date: 20111010
  Serious: No
  Sender: FDA-Public Use
  Company Number: A0917029A

PATIENT
  Age: 63 Year
  Sex: Female

DRUGS (1)
  1. FLOLAN [Suspect]
     Indication: PULMONARY ARTERIAL HYPERTENSION
     Dosage: 38NGKM UNKNOWN
     Route: 065
     Dates: start: 20110104

REACTIONS (2)
  - RASH MACULAR [None]
  - SKIN DISCOLOURATION [None]
